FAERS Safety Report 11071181 (Version 1)
Quarter: 2015Q2

REPORT INFORMATION
  Report Type: Spontaneous
  Country: US (occurrence: US)
  Receive Date: 20150428
  Receipt Date: 20150428
  Transmission Date: 20150821
  Serious: No
  Sender: FDA-Public Use
  Company Number: US-009507513-1504USA019607

PATIENT
  Sex: Female

DRUGS (2)
  1. BELSOMRA [Suspect]
     Active Substance: SUVOREXANT
     Indication: INSOMNIA
     Dosage: 5 MG, QD (ONE TABLET ONCE DAILY)
     Route: 048
     Dates: start: 201502, end: 201502
  2. BELSOMRA [Suspect]
     Active Substance: SUVOREXANT
     Dosage: 5 MG, QD (ONE TABLET ONCE DAILY)
     Route: 048
     Dates: start: 201502

REACTIONS (2)
  - Drug ineffective [Unknown]
  - Middle insomnia [Recovered/Resolved]

NARRATIVE: CASE EVENT DATE: 201502
